FAERS Safety Report 23220358 (Version 1)
Quarter: 2023Q4

REPORT INFORMATION
  Report Type: Spontaneous
  Country: US (occurrence: US)
  Receive Date: 20231123
  Receipt Date: 20231123
  Transmission Date: 20240110
  Serious: No
  Sender: FDA-Public Use
  Company Number: US-JNJFOC-20231148103

PATIENT
  Sex: Male

DRUGS (21)
  1. OPSUMIT [Suspect]
     Active Substance: MACITENTAN
     Indication: Product used for unknown indication
     Route: 048
  2. TREPROSTINIL [Suspect]
     Active Substance: TREPROSTINIL
     Indication: Pulmonary arterial hypertension
     Route: 048
     Dates: start: 20211210
  3. TRULICITY [Concomitant]
     Active Substance: DULAGLUTIDE
  4. KLOR-CON [Concomitant]
     Active Substance: POTASSIUM CHLORIDE
  5. SPIRONOLACTONE [Concomitant]
     Active Substance: SPIRONOLACTONE
  6. HUMALOG [Concomitant]
     Active Substance: INSULIN LISPRO
  7. WARFARIN [Concomitant]
     Active Substance: WARFARIN
  8. OXYCODONE HYDROCHLORIDE [Concomitant]
     Active Substance: OXYCODONE HYDROCHLORIDE
  9. SODIUM [Concomitant]
     Active Substance: SODIUM
  10. LOSARTAN [Concomitant]
     Active Substance: LOSARTAN
  11. POTASSIUM [Concomitant]
     Active Substance: POTASSIUM
  12. SILDENAFIL CITRATE [Concomitant]
     Active Substance: SILDENAFIL CITRATE
  13. JARDIANCE [Concomitant]
     Active Substance: EMPAGLIFLOZIN
  14. ALLOPURINOL [Concomitant]
     Active Substance: ALLOPURINOL
  15. ATORVASTATIN [Concomitant]
     Active Substance: ATORVASTATIN
  16. CALCIUM [Concomitant]
     Active Substance: CALCIUM
  17. URSODIOL [Concomitant]
     Active Substance: URSODIOL
  18. AMIODARONE HYDROCHLORIDE [Concomitant]
     Active Substance: AMIODARONE HYDROCHLORIDE
  19. BUMETANIDE [Concomitant]
     Active Substance: BUMETANIDE
  20. ASPIRIN [Concomitant]
     Active Substance: ASPIRIN
  21. LORATADINE [Concomitant]
     Active Substance: LORATADINE

REACTIONS (1)
  - Therapy cessation [Unknown]
